FAERS Safety Report 8917530 (Version 1)
Quarter: 2012Q4

REPORT INFORMATION
  Report Type: 
  Country: US (occurrence: US)
  Receive Date: 20121120
  Receipt Date: 20121120
  Transmission Date: 20130627
  Serious: No
  Sender: FDA-Public Use
  Company Number: US-009507513-1211USA007234

PATIENT
  Age: 59 Year
  Sex: Male

DRUGS (1)
  1. VICTRELIS [Suspect]
     Dosage: 800 mg, tid
     Route: 048
     Dates: start: 20121023

REACTIONS (1)
  - Memory impairment [Unknown]
